FAERS Safety Report 15906329 (Version 1)
Quarter: 2019Q1

REPORT INFORMATION
  Report Type: Spontaneous
  Country: US (occurrence: US)
  Receive Date: 20190203
  Receipt Date: 20190203
  Transmission Date: 20190417
  Serious: Yes (Life-Threatening, Other)
  Sender: FDA-Public Use
  Company Number: None

PATIENT
  Age: 17 Year
  Sex: Male
  Weight: 39.2 kg

DRUGS (4)
  1. ENTYVIO [Suspect]
     Active Substance: VEDOLIZUMAB
     Indication: GASTROENTERITIS EOSINOPHILIC
     Dosage: ?          OTHER FREQUENCY:Q2WKS, THEN Q2MONT;?
     Route: 041
  2. BUDESONIDE 1MG [Concomitant]
  3. IRON SULFATE [Concomitant]
     Active Substance: FERROUS SULFATE ANHYDROUS
  4. ELEMENTAL FORMULA [Concomitant]

REACTIONS (9)
  - Throat tightness [None]
  - Anxiety [None]
  - Chest discomfort [None]
  - Eosinophil count abnormal [None]
  - Swelling face [None]
  - Speech disorder [None]
  - Headache [None]
  - Erythema [None]
  - Abdominal pain [None]

NARRATIVE: CASE EVENT DATE: 20181214
